FAERS Safety Report 18431361 (Version 3)
Quarter: 2021Q1

REPORT INFORMATION
  Report Type: Spontaneous
  Country: US (occurrence: US)
  Receive Date: 20201027
  Receipt Date: 20210201
  Transmission Date: 20210419
  Serious: No
  Sender: FDA-Public Use
  Company Number: US-PFIZER INC-2020414242

PATIENT
  Age: 54 Year
  Sex: Female
  Weight: 65.32 kg

DRUGS (1)
  1. DILANTIN [Suspect]
     Active Substance: PHENYTOIN
     Indication: SEIZURE
     Dosage: 300 MG, DAILY (3 CAPSULES AT NIGHT)

REACTIONS (1)
  - Off label use [Unknown]
